FAERS Safety Report 12156704 (Version 1)
Quarter: 2016Q1

REPORT INFORMATION
  Report Type: Spontaneous
  Country: ZA (occurrence: ZA)
  Receive Date: 20160307
  Receipt Date: 20160307
  Transmission Date: 20160526
  Serious: Yes (Hospitalization, Other)
  Sender: FDA-Public Use
  Company Number: ZA-MYLANLABS-2016M1009710

PATIENT

DRUGS (1)
  1. TENOFOVIR DF/LAMIVUDINE/EFAVIRENZ TABLETS 300/300/600MG [Suspect]
     Active Substance: EFAVIRENZ\LAMIVUDINE\TENOFOVIR
     Dosage: UNK
     Route: 048
     Dates: start: 20130330, end: 201403

REACTIONS (9)
  - Weight decreased [Unknown]
  - Rash [Unknown]
  - CD4 lymphocytes decreased [Unknown]
  - Haemoglobin decreased [Unknown]
  - Confusional state [Unknown]
  - Blood creatine increased [Unknown]
  - Dyspnoea [Unknown]
  - Skin exfoliation [Unknown]
  - Viral load [Unknown]

NARRATIVE: CASE EVENT DATE: 201403
